FAERS Safety Report 17711169 (Version 3)
Quarter: 2020Q2

REPORT INFORMATION
  Report Type: Spontaneous
  Country: US (occurrence: US)
  Receive Date: 20200427
  Receipt Date: 20200506
  Transmission Date: 20200714
  Serious: No
  Sender: FDA-Public Use
  Company Number: US-PFIZER INC-2020165815

PATIENT
  Age: 73 Year

DRUGS (1)
  1. NICOTROL [Suspect]
     Active Substance: NICOTINE
     Dosage: UNK [TAKE AS DIRECTED]

REACTIONS (2)
  - Chronic obstructive pulmonary disease [Unknown]
  - Confusional state [Unknown]
